FAERS Safety Report 20480936 (Version 2)
Quarter: 2022Q1

REPORT INFORMATION
  Report Type: Spontaneous
  Country: FR (occurrence: FR)
  Receive Date: 20220216
  Receipt Date: 20220302
  Transmission Date: 20220423
  Serious: Yes (Other)
  Sender: FDA-Public Use
  Company Number: None

PATIENT
  Age: 22 Year
  Sex: Female

DRUGS (8)
  1. ARIPIPRAZOLE [Suspect]
     Active Substance: ARIPIPRAZOLE
     Indication: Product used for unknown indication
     Dosage: 2 X 10 MG IN THE MORNING
     Route: 048
     Dates: start: 2021
  2. CLORAZEPATE DIPOTASSIUM [Suspect]
     Active Substance: CLORAZEPATE DIPOTASSIUM
     Indication: Product used for unknown indication
     Dosage: 10 MG IN THE MORNING, 10 MG AT MIDDAY, 20 MG IN THE EVENING, 10 MG AT BEDTIME
     Route: 048
     Dates: start: 2021
  3. COCAINE [Suspect]
     Active Substance: COCAINE
     Indication: Product used for unknown indication
     Dosage: 4 LINES
     Route: 045
     Dates: start: 20210905, end: 20210905
  4. PIPAMPERONE [Suspect]
     Active Substance: PIPAMPERONE
     Indication: Product used for unknown indication
     Dosage: 20 MG IN THE MORNING, 20 MG AT MIDDAY, 40 MG IN THE EVENING
     Route: 048
     Dates: start: 2021
  5. TRIMEPRAZINE [Suspect]
     Active Substance: TRIMEPRAZINE
     Indication: Product used for unknown indication
     Dosage: 20 MG, QD
     Route: 048
     Dates: start: 2021
  6. BUSPIRONE HYDROCHLORIDE [Suspect]
     Active Substance: BUSPIRONE HYDROCHLORIDE
     Indication: Product used for unknown indication
     Dosage: 10 MG IN THE MORNING, 10 MG AT MIDDAY, 20 MG IN THE EVENING
     Route: 048
     Dates: start: 2021
  7. PREGABALIN [Suspect]
     Active Substance: PREGABALIN
     Indication: Poisoning deliberate
     Dosage: 50 MG AT MIDDAY, 50 MG IN THE EVENING
     Route: 048
     Dates: start: 2021
  8. LITHIUM [Suspect]
     Active Substance: LITHIUM
     Indication: Product used for unknown indication
     Dosage: 250 MG IN THE EVENING
     Route: 048
     Dates: start: 2021

REACTIONS (2)
  - Depressed level of consciousness [Recovered/Resolved]
  - Drug abuse [Unknown]

NARRATIVE: CASE EVENT DATE: 20210905
